FAERS Safety Report 5146586-3 (Version None)
Quarter: 2006Q4

REPORT INFORMATION
  Report Type: 
  Country: None (occurrence: None)
  Receive Date: 20060911
  Receipt Date: 20060710
  Transmission Date: 20070319
  Serious: No
  Sender: FDA-Public Use
  Company Number: IND-AE-06-SAN-028

PATIENT
  Age: 85 Year
  Sex: Female
  Weight: 58.9676 kg

DRUGS (9)
  1. SANCTURA [Suspect]
     Indication: HYPERTONIC BLADDER
     Dosage: 20 MG -BID-ORAL
     Route: 048
     Dates: start: 20060708, end: 20060710
  2. REGLAN [Concomitant]
  3. PRILOSEC [Concomitant]
  4. METHYLDOPA [Concomitant]
  5. HYDROCHLOROTHIAZIDE [Concomitant]
  6. ZOLOFT [Concomitant]
  7. ACTONEL [Concomitant]
  8. VICODIN [Concomitant]
  9. LORTAB [Concomitant]

REACTIONS (3)
  - BALANCE DISORDER [None]
  - CONFUSIONAL STATE [None]
  - HEADACHE [None]
